FAERS Safety Report 5597614-2 (Version None)
Quarter: 2008Q1

REPORT INFORMATION
  Report Type: 
  Country: None (occurrence: None)
  Receive Date: 20080121
  Receipt Date: 20080111
  Transmission Date: 20080703
  Serious: Yes (Hospitalization)
  Sender: FDA-Public Use
  Company Number: DE-ROCHE-540801

PATIENT
  Age: 43 Year
  Sex: Female
  Weight: 82 kg

DRUGS (4)
  1. CAPECITABINE [Suspect]
     Indication: PANCREATIC CARCINOMA
     Dosage: GIVEN DAYS 1 THROUGH 14, FOLLOWED BY 7 DAYS OF. 2000 MG GIVEN IN THE MORNING AND 1500 MG IN THE EVE+
     Route: 048
     Dates: start: 20071205, end: 20080109
  2. ERLOTINIB [Suspect]
     Indication: PANCREATIC CARCINOMA
     Route: 048
     Dates: start: 20071205, end: 20080109
  3. CLEXANE [Concomitant]
     Dates: start: 20071213
  4. VOLTAREN [Concomitant]
     Dates: start: 20071227

REACTIONS (3)
  - ANAEMIA [None]
  - ASCITES [None]
  - GENERAL PHYSICAL HEALTH DETERIORATION [None]
